FAERS Safety Report 4578104-2 (Version None)
Quarter: 2005Q1

REPORT INFORMATION
  Report Type: 
  Country: None (occurrence: None)
  Receive Date: 20050209
  Receipt Date: 20050128
  Transmission Date: 20050727
  Serious: Yes (Hospitalization)
  Sender: FDA-Public Use
  Company Number: 211187

PATIENT
  Age: 57 Year
  Sex: Female
  Weight: 88 kg

DRUGS (6)
  1. MABTHERA (RITUXIMAB) CONC FOR SOLUTION FOR INFUSION [Suspect]
     Indication: NON-HODGKIN'S LYMPHOMA
     Dosage: 600 MG, INTRAVENOUS
     Route: 042
  2. PANTOZOL (PANTOPRAZOLE) [Concomitant]
  3. ACETAMINOPHEN [Concomitant]
  4. FENISTIL (DIMETHINDENE MALEATE) [Concomitant]
  5. PREDNISONE TAB [Concomitant]
  6. ALLOPURINOL [Concomitant]

REACTIONS (2)
  - CATHETER RELATED COMPLICATION [None]
  - EXTRAVASATION [None]
